FAERS Safety Report 8618517-2 (Version None)
Quarter: 2012Q3

REPORT INFORMATION
  Report Type: 
  Country: None (occurrence: None)
  Receive Date: 20120810
  Receipt Date: 20120801
  Transmission Date: 20120928
  Serious: Yes (Hospitalization)
  Sender: FDA-Public Use
  Company Number: UTC-020881

PATIENT
  Age: 73 Year
  Sex: Female

DRUGS (9)
  1. DIOVAN HCT (CO-DIOVAN) [Concomitant]
  2. REGLAN [Concomitant]
  3. PREVACID [Concomitant]
  4. TRACLEER [Concomitant]
  5. COVERA-HS [Concomitant]
  6. CENTRUM SILVER (CENTRUM SILVER /01292501/) [Concomitant]
  7. TYVASO [Suspect]
     Indication: PULMONARY ARTERIAL HYPERTENSION
     Dosage: 216 MCG (54 MCG, 4 IN 1 D), INHALATION
     Route: 055
     Dates: start: 20120601
  8. REVATIO [Concomitant]
  9. CALCIUM [Concomitant]

REACTIONS (2)
  - PULMONARY OEDEMA [None]
  - DYSPNOEA [None]
